FAERS Safety Report 23348524 (Version 3)
Quarter: 2025Q2

REPORT INFORMATION
  Report Type: Spontaneous
  Country: US (occurrence: US)
  Receive Date: 20231228
  Receipt Date: 20250609
  Transmission Date: 20250716
  Serious: No
  Sender: SANOFI AVENTIS
  Company Number: US-SA-SAC20231221000126

PATIENT
  Sex: Male
  Weight: 70.295 kg

DRUGS (16)
  1. FABRAZYME [Suspect]
     Active Substance: AGALSIDASE BETA
     Indication: Fabry^s disease
     Dosage: 70 MG, QOW
     Route: 042
     Dates: start: 20190715
  2. STERILE WATER [Concomitant]
     Active Substance: WATER
  3. ACETAMINOPHEN [Concomitant]
     Active Substance: ACETAMINOPHEN
  4. SODIUM CHLORIDE [Concomitant]
     Active Substance: SODIUM CHLORIDE
  5. EPINEPHRINE [Concomitant]
     Active Substance: EPINEPHRINE
  6. PROAIR HFA [Concomitant]
     Active Substance: ALBUTEROL SULFATE
  7. FLOVENT HFA [Concomitant]
     Active Substance: FLUTICASONE PROPIONATE
  8. LEVOTHYROXINE [Concomitant]
     Active Substance: LEVOTHYROXINE
  9. ONDANSETRON [Concomitant]
     Active Substance: ONDANSETRON
  10. TYLENOL [Concomitant]
     Active Substance: ACETAMINOPHEN
  11. CLOPIDOGREL [Concomitant]
     Active Substance: CLOPIDOGREL BISULFATE
  12. LIDOCAINE [Concomitant]
     Active Substance: LIDOCAINE
  13. LISINOPRIL [Concomitant]
     Active Substance: LISINOPRIL
  14. DIPHENHYDRAMINE HYDROCHLORIDE [Concomitant]
     Active Substance: DIPHENHYDRAMINE HYDROCHLORIDE
  15. METHIMAZOLE [Concomitant]
     Active Substance: METHIMAZOLE
  16. SODIUM CHLORIDE [Concomitant]
     Active Substance: SODIUM CHLORIDE

REACTIONS (4)
  - Chills [Unknown]
  - Pain in extremity [Unknown]
  - Paraesthesia [Unknown]
  - Fatigue [Unknown]
